FAERS Safety Report 6181952-9 (Version None)
Quarter: 2009Q2

REPORT INFORMATION
  Report Type: 
  Country: None (occurrence: None)
  Receive Date: 20090505
  Receipt Date: 20090422
  Transmission Date: 20091009
  Serious: Yes (Hospitalization)
  Sender: FDA-Public Use
  Company Number: 234556K09USA

PATIENT
  Age: 46 Year
  Sex: Male

DRUGS (8)
  1. REBIF [Suspect]
     Indication: MULTIPLE SCLEROSIS
     Dosage: 22 MCG, 3 IN 1 WEEKS, SUBCUTANEOUS
     Route: 058
     Dates: start: 20090227
  2. NEURONTIN [Concomitant]
  3. XANAX [Concomitant]
  4. BACTRIM [Concomitant]
  5. NEXIUM [Concomitant]
  6. CYMBALTA [Concomitant]
  7. RESTORIL [Concomitant]
  8. UNSPECIFIED MEDICATION (ALL OTHER THERAPEUTIC PRODUCTS) [Concomitant]

REACTIONS (10)
  - BLOOD PRESSURE DECREASED [None]
  - CHEST DISCOMFORT [None]
  - CONDITION AGGRAVATED [None]
  - DIZZINESS [None]
  - HEART RATE INCREASED [None]
  - HEART RATE IRREGULAR [None]
  - HYPOACUSIS [None]
  - MULTIPLE SCLEROSIS [None]
  - PNEUMONIA [None]
  - SEPSIS [None]
